FAERS Safety Report 4840335-1 (Version None)
Quarter: 2005Q4

REPORT INFORMATION
  Report Type: 
  Country: None (occurrence: None)
  Receive Date: 20051025
  Receipt Date: 20050302
  Transmission Date: 20060501
  Serious: Yes (Life-Threatening, Hospitalization)
  Sender: FDA-Public Use
  Company Number: HQWYE793803MAR05

PATIENT
  Age: 43 Year
  Sex: Male
  Weight: 107 kg

DRUGS (16)
  1. RAPAMUNE [Suspect]
     Indication: RENAL TRANSPLANT
     Dosage: ORAL;2 MG 1X PER 1 DAY,ORAL;1 MG 1X PER 1 DAY,ORAL;1 MG ALTERNATING WITH 2 MG DAILY,ORAL
     Route: 048
     Dates: start: 20040101, end: 20040101
  2. RAPAMUNE [Suspect]
     Indication: RENAL TRANSPLANT
     Dosage: ORAL;2 MG 1X PER 1 DAY,ORAL;1 MG 1X PER 1 DAY,ORAL;1 MG ALTERNATING WITH 2 MG DAILY,ORAL
     Route: 048
     Dates: end: 20040101
  3. RAPAMUNE [Suspect]
     Indication: RENAL TRANSPLANT
     Dosage: ORAL;2 MG 1X PER 1 DAY,ORAL;1 MG 1X PER 1 DAY,ORAL;1 MG ALTERNATING WITH 2 MG DAILY,ORAL
     Route: 048
     Dates: start: 20040101, end: 20050214
  4. RAPAMUNE [Suspect]
     Indication: RENAL TRANSPLANT
     Dosage: ORAL;2 MG 1X PER 1 DAY,ORAL;1 MG 1X PER 1 DAY,ORAL;1 MG ALTERNATING WITH 2 MG DAILY,ORAL
     Route: 048
     Dates: start: 20020611
  5. NEORAL [Concomitant]
  6. PREDNISONE [Concomitant]
  7. BACTRIM [Concomitant]
  8. TUMS (CALCIUM CARBONATE/MAGNESIUM CARBONATE/MAGNESIUM TRISILICATE) [Concomitant]
  9. TENORMIN [Concomitant]
  10. LIPITOR [Concomitant]
  11. GLUCOTROL [Concomitant]
  12. IRON (IRON) [Concomitant]
  13. ATACAND [Concomitant]
  14. ARANESP [Concomitant]
  15. LEUKERAN [Concomitant]
  16. ZYLOPRIM [Concomitant]

REACTIONS (4)
  - BLOOD CREATININE INCREASED [None]
  - CONDITION AGGRAVATED [None]
  - HYPERCHOLESTEROLAEMIA [None]
  - HYPERTRIGLYCERIDAEMIA [None]
